FAERS Safety Report 16268614 (Version 1)
Quarter: 2019Q2

REPORT INFORMATION
  Report Type: Report from Study
  Country: None (occurrence: CL)
  Receive Date: 20190503
  Receipt Date: 20190503
  Transmission Date: 20190711
  Serious: Yes (Other)
  Sender: FDA-Public Use
  Company Number: CL-ABBVIE-19K-034-2703101-00

PATIENT
  Sex: Female
  Weight: 85 kg

DRUGS (2)
  1. ATROPINA [Concomitant]
     Active Substance: ATROPINE
     Indication: PRODUCT USED FOR UNKNOWN INDICATION
  2. HUMIRA [Suspect]
     Active Substance: ADALIMUMAB
     Indication: CROHN^S DISEASE
     Route: 058
     Dates: start: 20181210

REACTIONS (5)
  - Abortion spontaneous [Unknown]
  - Nasopharyngitis [Not Recovered/Not Resolved]
  - Foetal malformation [Unknown]
  - Emotional distress [Unknown]
  - Exposure during pregnancy [Unknown]

NARRATIVE: CASE EVENT DATE: 20190401
